FAERS Safety Report 10760989 (Version 1)
Quarter: 2015Q1

REPORT INFORMATION
  Report Type: Spontaneous
  Country: US (occurrence: None)
  Receive Date: 20150202
  Receipt Date: 20150202
  Transmission Date: 20150721
  Serious: Yes (Hospitalization)
  Sender: FDA-Public Use
  Company Number: 001859188A

PATIENT
  Age: 42 Year
  Sex: Female

DRUGS (2)
  1. MEANINGFUL BEAUTY CINDY CRAWFORD SKIN BRIGHTENING DECOLLETE AND NECK TREATMENT SPF 15 [Suspect]
     Active Substance: AVOBENZONE\OCTINOXATE\OCTISALATE\OXYBENZONE
     Dosage: BID, DERMAL
     Route: 050
     Dates: start: 20141216, end: 20141217
  2. MEANINGFUL BEAUTY CINDY CRAWFORD ANTIOXIDANT SPF 20 UVA/UVB [Suspect]
     Active Substance: AVOBENZONE\OCTINOXATE\OCTISALATE\OXYBENZONE
     Dosage: BID, DERMAL
     Route: 050
     Dates: start: 20141216, end: 20141217

REACTIONS (3)
  - Paraesthesia [None]
  - Anaphylactic shock [None]
  - Burning sensation [None]

NARRATIVE: CASE EVENT DATE: 20141217
